FAERS Safety Report 13341186 (Version 1)
Quarter: 2017Q1

REPORT INFORMATION
  Report Type: Spontaneous
  Country: US (occurrence: US)
  Receive Date: 20170316
  Receipt Date: 20170316
  Transmission Date: 20170428
  Serious: No
  Sender: FDA-Public Use
  Company Number: US-ASTRAZENECA-2010BM05056

PATIENT
  Age: 24737 Day
  Sex: Male
  Weight: 92.5 kg

DRUGS (24)
  1. ACTOS [Concomitant]
     Active Substance: PIOGLITAZONE HYDROCHLORIDE
  2. PANTOPRAZOLE [Concomitant]
     Active Substance: PANTOPRAZOLE SODIUM
  3. HYDRALAZINE [Concomitant]
     Active Substance: HYDRALAZINE HYDROCHLORIDE
  4. EYE DROPS [Concomitant]
  5. ERYTHROMYCIN. [Concomitant]
     Active Substance: ERYTHROMYCIN
  6. BYETTA [Suspect]
     Active Substance: EXENATIDE
     Indication: INSULIN-REQUIRING TYPE 2 DIABETES MELLITUS
     Dosage: 250 MCG / 2.4 ML PEN 5 MCG TWO TIMES A DAY
     Route: 058
  7. ADVAIR HFA [Concomitant]
     Active Substance: FLUTICASONE PROPIONATE\SALMETEROL XINAFOATE
  8. FISH OIL [Concomitant]
     Active Substance: FISH OIL
  9. MULTIVITAMIN [Concomitant]
     Active Substance: VITAMINS
  10. ALTACE [Concomitant]
     Active Substance: RAMIPRIL
  11. GLUCOPHAGE /USA/ [Concomitant]
  12. PIOGLITAZONE. [Concomitant]
     Active Substance: PIOGLITAZONE
  13. AMLODIPINE [Concomitant]
     Active Substance: AMLODIPINE BESYLATE
  14. BYETTA [Suspect]
     Active Substance: EXENATIDE
     Indication: INSULIN-REQUIRING TYPE 2 DIABETES MELLITUS
     Dosage: 250 MCG / 2.4 ML PEN 10 MCG TWO TIMES A DAY
     Route: 058
  15. METOPROLOL TARTRATE. [Suspect]
     Active Substance: METOPROLOL TARTRATE
     Indication: BLOOD PRESSURE ABNORMAL
     Route: 065
  16. ZYRTEC [Concomitant]
     Active Substance: CETIRIZINE HYDROCHLORIDE
  17. HUMALOG [Concomitant]
     Active Substance: INSULIN LISPRO
  18. PENTOXIFYLLINE. [Concomitant]
     Active Substance: PENTOXIFYLLINE
  19. RAMIPRIL. [Concomitant]
     Active Substance: RAMIPRIL
  20. CALCIUM [Concomitant]
     Active Substance: CALCIUM
  21. LANTUS [Concomitant]
     Active Substance: INSULIN GLARGINE
  22. METFORMIN [Concomitant]
     Active Substance: METFORMIN HYDROCHLORIDE
  23. PRAVACHOL [Concomitant]
     Active Substance: PRAVASTATIN SODIUM
  24. HYDROCHLOROTHIAZIDE. [Concomitant]
     Active Substance: HYDROCHLOROTHIAZIDE

REACTIONS (3)
  - Drug dose omission [Unknown]
  - Blood glucose increased [Unknown]
  - Circumstance or information capable of leading to medication error [Unknown]

NARRATIVE: CASE EVENT DATE: 20100404
